FAERS Safety Report 4907369-X (Version None)
Quarter: 2006Q1

REPORT INFORMATION
  Report Type: 
  Country: None (occurrence: None)
  Receive Date: 20060208
  Receipt Date: 20060208
  Transmission Date: 20060701
  Serious: No
  Sender: FDA-Public Use
  Company Number: None

PATIENT
  Sex: Male

DRUGS (2)
  1. ALPRAZOLAM [Suspect]
     Indication: ANXIETY
     Dosage: 0.50MG QHS PO
     Route: 048
     Dates: start: 20000201
  2. ALPRAZOLAM [Suspect]
     Indication: SLEEP DISORDER
     Dosage: 0.50MG QHS PO
     Route: 048
     Dates: start: 20000201

REACTIONS (1)
  - NO ADVERSE EFFECT [None]
